FAERS Safety Report 7926488-7 (Version None)
Quarter: 2011Q4

REPORT INFORMATION
  Report Type: 
  Country: None (occurrence: None)
  Receive Date: 20111118
  Receipt Date: 20111111
  Transmission Date: 20120403
  Serious: No
  Sender: FDA-Public Use
  Company Number: US-BIOGENIDEC-2011BI043244

PATIENT
  Age: 44 Year
  Sex: Female

DRUGS (1)
  1. TYSABRI [Suspect]
     Indication: MULTIPLE SCLEROSIS
     Route: 042
     Dates: start: 20091209

REACTIONS (6)
  - VISION BLURRED [None]
  - DRY EYE [None]
  - EAR INFECTION [None]
  - PELVIC PAIN [None]
  - BALANCE DISORDER [None]
  - URINARY TRACT INFECTION [None]
